FAERS Safety Report 25730322 (Version 1)
Quarter: 2025Q3

REPORT INFORMATION
  Report Type: Spontaneous
  Country: US (occurrence: None)
  Receive Date: 20250827
  Receipt Date: 20250827
  Transmission Date: 20251021
  Serious: No
  Sender: FDA-CTU
  Company Number: None

PATIENT
  Age: 53 Year
  Sex: Male
  Weight: 89.9 kg

DRUGS (1)
  1. XELODA [Suspect]
     Active Substance: CAPECITABINE
     Dates: end: 20250801

REACTIONS (4)
  - Contrast media allergy [None]
  - Swelling face [None]
  - Lip swelling [None]
  - Mouth swelling [None]

NARRATIVE: CASE EVENT DATE: 20250817
